FAERS Safety Report 9647951 (Version 1)
Quarter: 2013Q4

REPORT INFORMATION
  Report Type: Spontaneous
  Country: US (occurrence: US)
  Receive Date: 20131028
  Receipt Date: 20131028
  Transmission Date: 20140711
  Serious: No
  Sender: FDA-Public Use
  Company Number: US-PFIZER INC-2013306324

PATIENT
  Age: 70 Year
  Sex: Female

DRUGS (3)
  1. LYRICA [Suspect]
     Indication: PAIN
     Dosage: UNK
     Dates: start: 2008
  2. VICODIN [Suspect]
     Indication: PAIN
     Dosage: UNK
  3. TAMSULOSIN [Concomitant]
     Dosage: UNK

REACTIONS (2)
  - Sleep disorder [Unknown]
  - Drug ineffective [Unknown]
